FAERS Safety Report 8836326 (Version 5)
Quarter: 2013Q1

REPORT INFORMATION
  Report Type: Report from Study
  Country: JP (occurrence: JP)
  Receive Date: 20121011
  Receipt Date: 20130125
  Transmission Date: 20140127
  Serious: Yes (Hospitalization, Other)
  Sender: FDA-Public Use
  Company Number: JP-PFIZER INC-2012247573

PATIENT
  Age: 69 Year
  Sex: Male
  Weight: 54 kg

DRUGS (20)
  1. BLINDED THERAPY [Suspect]
     Indication: PARKINSON^S DISEASE
     Dosage: 3 MG, 1X/DAY
     Route: 048
     Dates: start: 20110805, end: 20120818
  2. BLINDED THERAPY [Suspect]
     Dosage: 5 MG, 1X/DAY
     Route: 048
     Dates: start: 20120819, end: 20121011
  3. LIPITOR [Suspect]
     Indication: HYPERLIPIDAEMIA
     Dosage: 5 MG, 1X/DAY
     Route: 048
  4. JZOLOFT [Suspect]
     Indication: ANXIETY
     Dosage: 25 MG, 1X/DAY
     Route: 048
  5. COMTAN [Suspect]
     Indication: PARKINSON^S DISEASE
     Dosage: 100 MG, 3X/DAY
     Route: 048
     Dates: start: 20110826
  6. MENESIT [Suspect]
     Indication: PARKINSON^S DISEASE
     Dosage: 100 MG, 5 IN 1 D
     Route: 048
     Dates: start: 20111209
  7. MAGMITT [Suspect]
     Indication: CONSTIPATION
     Dosage: 1000 MG, 1X/DAY
     Route: 048
  8. RIVOTRIL [Suspect]
     Indication: RAPID EYE MOVEMENTS SLEEP ABNORMAL
     Dosage: 5 MG, 1X/DAY
     Route: 048
  9. TIZANIN [Suspect]
     Indication: TENSION HEADACHE
     Dosage: 1 MG, 3X/DAY
     Route: 048
     Dates: start: 20111111
  10. SENNOSIDE A+B [Suspect]
     Indication: CONSTIPATION
     Dosage: 12 MG, 1X/DAY
     Route: 048
  11. GASMOTIN [Suspect]
     Indication: IMPAIRED GASTRIC EMPTYING
     Dosage: 5 MG, 1X/DAY
     Route: 048
  12. MOHRUS [Suspect]
     Indication: BACK PAIN
     Dosage: UNK
     Route: 065
     Dates: start: 20110818
  13. PROPADERM [Suspect]
     Indication: DERMATITIS ATOPIC
     Dosage: UNK
     Route: 048
     Dates: start: 20111111
  14. BESOFTEN [Suspect]
     Indication: DERMATITIS ATOPIC
     Dosage: UNK
     Route: 048
  15. REQUIP [Concomitant]
     Indication: PARKINSON^S DISEASE
     Dosage: 1.5 MG, 1 IN 4 D
     Route: 048
     Dates: start: 20120302
  16. MELOXICAM [Concomitant]
     Indication: BACK PAIN
     Dosage: 10 MG, 1X/DAY
     Route: 048
     Dates: start: 20120315
  17. EURODIN [Concomitant]
     Indication: INSOMNIA
     Dosage: 2 MG, 1X/DAY
     Route: 048
     Dates: start: 20120301
  18. RITALIN [Concomitant]
     Indication: SOMNOLENCE
     Dosage: 10 MG, 1X/DAY
     Route: 048
     Dates: start: 20120329
  19. LAXOBERON [Concomitant]
     Indication: CONSTIPATION
     Dosage: UNK
     Route: 048
     Dates: start: 20120405
  20. PARIET [Concomitant]
     Indication: PROPHYLAXIS AGAINST GASTROINTESTINAL ULCER
     Dosage: 20 MG, 1X/DAY
     Route: 048
     Dates: start: 20120913

REACTIONS (1)
  - Gastric cancer [Recovered/Resolved]
